FAERS Safety Report 9397147 (Version 1)
Quarter: 2013Q3

REPORT INFORMATION
  Report Type: Report from Study
  Country: NL (occurrence: NL)
  Receive Date: 20130712
  Receipt Date: 20130712
  Transmission Date: 20140515
  Serious: Yes (Other)
  Sender: FDA-Public Use
  Company Number: PHHY2013NL073919

PATIENT
  Sex: Male

DRUGS (4)
  1. ZOMETA [Suspect]
     Indication: PROSTATE CANCER METASTATIC
     Dosage: 4 MG/100 ML (ONCE PER 4 WEEKS)
  2. ZOMETA [Suspect]
     Dosage: 4 MG/100 ML (ONCE PER 4 WEEKS)
     Dates: start: 20120523
  3. ZOMETA [Suspect]
     Dosage: 4 MG/100 ML (ONCE PER 4 WEEKS)
     Dates: start: 20130528
  4. ZOMETA [Suspect]
     Dosage: 4 MG/100 ML (ONCE PER 4 WEEKS)
     Dates: start: 20130624

REACTIONS (1)
  - Terminal state [Not Recovered/Not Resolved]
